FAERS Safety Report 9491293 (Version 1)
Quarter: 2013Q3

REPORT INFORMATION
  Report Type: Spontaneous
  Country: BR (occurrence: BR)
  Receive Date: 20130830
  Receipt Date: 20130830
  Transmission Date: 20140515
  Serious: Yes (Hospitalization)
  Sender: FDA-Public Use
  Company Number: BR-PFIZER INC-2013247013

PATIENT
  Age: 75 Year
  Sex: Female

DRUGS (1)
  1. CELEBRA [Suspect]
     Dosage: STRENGTH 200MG
     Dates: start: 2011

REACTIONS (1)
  - Infarction [Unknown]
